FAERS Safety Report 15689390 (Version 1)
Quarter: 2018Q4

REPORT INFORMATION
  Report Type: Spontaneous
  Country: FR (occurrence: FR)
  Receive Date: 20181205
  Receipt Date: 20181205
  Transmission Date: 20190205
  Serious: Yes (Hospitalization)
  Sender: FDA-Public Use
  Company Number: FR-TEVA-2018-FR-982415

PATIENT
  Age: 15 Year
  Sex: Female
  Weight: 52 kg

DRUGS (1)
  1. ANTADYS [Suspect]
     Active Substance: FLURBIPROFEN
     Indication: ABDOMINAL PAIN
     Route: 048
     Dates: start: 20181012, end: 20181012

REACTIONS (1)
  - Acute kidney injury [Recovered/Resolved]

NARRATIVE: CASE EVENT DATE: 20181014
